FAERS Safety Report 16933820 (Version 2)
Quarter: 2019Q4

REPORT INFORMATION
  Report Type: Report from Study
  Country: None (occurrence: US)
  Receive Date: 20191018
  Receipt Date: 20191105
  Transmission Date: 20200122
  Serious: Yes (Other)
  Sender: FDA-Public Use
  Company Number: US-ABBVIE-19K-163-2960828-00

PATIENT
  Sex: Male

DRUGS (1)
  1. HUMIRA [Suspect]
     Active Substance: ADALIMUMAB
     Indication: HIDRADENITIS
     Route: 058
     Dates: start: 201808

REACTIONS (4)
  - Groin infection [Unknown]
  - Drug ineffective [Not Recovered/Not Resolved]
  - Skin lesion [Not Recovered/Not Resolved]
  - Pain of skin [Not Recovered/Not Resolved]
